FAERS Safety Report 5444056-6 (Version None)
Quarter: 2007Q3

REPORT INFORMATION
  Report Type: 
  Country: None (occurrence: None)
  Receive Date: 20070831
  Receipt Date: 20070827
  Transmission Date: 20080115
  Serious: Yes (Death)
  Sender: FDA-Public Use
  Company Number: US019628

PATIENT
  Sex: Male
  Weight: 72.7 kg

DRUGS (9)
  1. FENTORA [Suspect]
     Indication: CANCER PAIN
     Dosage: 400 UG Q2HR PRN UP TO 8 QD BUCCAL
     Route: 002
     Dates: start: 20070112
  2. MORPHINE [Concomitant]
  3. FENTANYL [Concomitant]
  4. TEGRETOL [Concomitant]
  5. TENORMIN [Concomitant]
  6. FLOMAX [Concomitant]
  7. LYRICA [Concomitant]
  8. PREVACID [Concomitant]
  9. RAPAMUNE [Concomitant]

REACTIONS (9)
  - CONSTIPATION [None]
  - DRUG INEFFECTIVE [None]
  - DRUG INTOLERANCE [None]
  - DYSARTHRIA [None]
  - DYSURIA [None]
  - FEELING ABNORMAL [None]
  - INADEQUATE ANALGESIA [None]
  - ORAL INTAKE REDUCED [None]
  - SOMNOLENCE [None]
